FAERS Safety Report 5865855-2 (Version None)
Quarter: 2008Q3

REPORT INFORMATION
  Report Type: 
  Country: None (occurrence: None)
  Receive Date: 20080829
  Receipt Date: 20080818
  Transmission Date: 20090109
  Serious: Yes (Hospitalization, Other)
  Sender: FDA-Public Use
  Company Number: US-ELI_LILLY_AND_COMPANY-US200805006097

PATIENT
  Age: 80 Year
  Sex: Female

DRUGS (1)
  1. FORTEO [Suspect]
     Indication: ARTHRITIS
     Dosage: 20 UG, DAILY (1/D)
     Dates: start: 20030220

REACTIONS (3)
  - FALL [None]
  - HIP FRACTURE [None]
  - RHEUMATOID ARTHRITIS [None]
